FAERS Safety Report 12941119 (Version 4)
Quarter: 2018Q1

REPORT INFORMATION
  Report Type: Spontaneous
  Country: US (occurrence: US)
  Receive Date: 20161115
  Receipt Date: 20180306
  Transmission Date: 20180508
  Serious: Yes (Other)
  Sender: FDA-Public Use
  Company Number: US-JNJFOC-20161103238

PATIENT
  Age: 5 Year
  Sex: Male

DRUGS (3)
  1. RISPERDAL [Suspect]
     Active Substance: RISPERIDONE
     Indication: ATTENTION DEFICIT/HYPERACTIVITY DISORDER
     Dosage: IN THE VARYING DOSE OF 0.25 MG, 0.5 MG AND 1 MG
     Route: 048
     Dates: start: 20011130, end: 20070508
  2. RISPERIDONE. [Suspect]
     Active Substance: RISPERIDONE
     Indication: ATTENTION DEFICIT/HYPERACTIVITY DISORDER
     Route: 048
     Dates: start: 20080319, end: 20081124
  3. RISPERDAL [Suspect]
     Active Substance: RISPERIDONE
     Indication: ATTENTION DEFICIT/HYPERACTIVITY DISORDER
     Route: 048
     Dates: start: 20120530, end: 20130909

REACTIONS (5)
  - Off label use [Unknown]
  - Gynaecomastia [Unknown]
  - Product use in unapproved indication [Unknown]
  - Obesity [Unknown]
  - Emotional distress [Unknown]

NARRATIVE: CASE EVENT DATE: 20011130
